FAERS Safety Report 5720262-8 (Version None)
Quarter: 2008Q2

REPORT INFORMATION
  Report Type: 
  Country: None (occurrence: None)
  Receive Date: 20080428
  Receipt Date: 20080414
  Transmission Date: 20081010
  Serious: Yes (Death, Hospitalization)
  Sender: FDA-Public Use
  Company Number: CA-ROCHE-559517

PATIENT
  Age: 48 Year
  Sex: Male

DRUGS (7)
  1. NAPROXEN [Suspect]
     Route: 065
  2. TENOFOVIR DISOPROXIL FUMARATE [Suspect]
     Indication: HIV INFECTION
     Route: 065
  3. DIDANOSINE [Concomitant]
  4. LOPINAVIR [Concomitant]
  5. FUROSEMIDE [Concomitant]
  6. SPIRONOLACTONE [Concomitant]
  7. RITONAVIR [Concomitant]

REACTIONS (1)
  - RENAL TUBULAR NECROSIS [None]
